FAERS Safety Report 5697514-3 (Version None)
Quarter: 2008Q2

REPORT INFORMATION
  Report Type: 
  Country: None (occurrence: None)
  Receive Date: 20080408
  Receipt Date: 20080326
  Transmission Date: 20081010
  Serious: Yes (Other)
  Sender: FDA-Public Use
  Company Number: GB-AMGEN-US272878

PATIENT
  Sex: Male

DRUGS (7)
  1. ENBREL [Suspect]
     Indication: DRUG USE FOR UNKNOWN INDICATION
     Dosage: 25MG, FREQUENCY UNKNOWN
     Route: 065
  2. LOSARTAN POTASSIUM [Concomitant]
     Dosage: UNKNOWN
     Route: 065
  3. AMLODIPINE [Concomitant]
     Dosage: UNKNOWN
     Route: 065
  4. LANSOPRAZOLE [Concomitant]
     Dosage: UNKNOWN
     Route: 065
  5. SULFASALAZINE [Concomitant]
     Dosage: UNKNOWN
     Route: 065
  6. DICLOFENAC SODIUM [Concomitant]
     Dosage: UNKNOWN
     Route: 065
  7. ATORVASTATIN [Concomitant]
     Dosage: UNKNOWN
     Route: 065

REACTIONS (11)
  - DIARRHOEA [None]
  - FATIGUE [None]
  - INJECTION SITE ERYTHEMA [None]
  - INJECTION SITE MASS [None]
  - INJECTION SITE PAIN [None]
  - INJECTION SITE PRURITUS [None]
  - INJECTION SITE REACTION [None]
  - INJECTION SITE WARMTH [None]
  - MALAISE [None]
  - RASH [None]
  - UNEVALUABLE EVENT [None]
